FAERS Safety Report 24538380 (Version 2)
Quarter: 2024Q4

REPORT INFORMATION
  Report Type: Spontaneous
  Country: GR (occurrence: GR)
  Receive Date: 20241023
  Receipt Date: 20241107
  Transmission Date: 20250115
  Serious: Yes (Other)
  Sender: ORGANON
  Company Number: None

PATIENT
  Age: 73 Year
  Sex: Male

DRUGS (2)
  1. EZETIMIBE [Suspect]
     Active Substance: EZETIMIBE
     Indication: Product used for unknown indication
     Dosage: 30 MILLIGRAM (10+20) MG
  2. CRESTOR [Suspect]
     Active Substance: ROSUVASTATIN CALCIUM
     Indication: Product used for unknown indication
     Dosage: 10 MG DAILY
     Route: 048

REACTIONS (4)
  - Myopathy [Recovered/Resolved]
  - Gait disturbance [Recovered/Resolved]
  - Myopathy [Recovered/Resolved]
  - Gait disturbance [Recovered/Resolved]
